FAERS Safety Report 9207800 (Version 19)
Quarter: 2016Q1

REPORT INFORMATION
  Report Type: Spontaneous
  Country: US (occurrence: US)
  Receive Date: 20130403
  Receipt Date: 20160309
  Transmission Date: 20160526
  Serious: Yes (Hospitalization, Other)
  Sender: FDA-Public Use
  Company Number: US-GLAXOSMITHKLINE-A1018427A

PATIENT
  Age: 50 Year
  Sex: Female

DRUGS (25)
  1. LAMICTAL XR [Suspect]
     Active Substance: LAMOTRIGINE
     Indication: BRAIN OPERATION
     Dosage: 100 MG, U
     Dates: start: 20130429
  2. LAMICTAL XR [Suspect]
     Active Substance: LAMOTRIGINE
     Dosage: 200 MG, QD
  3. LAMICTAL XR [Suspect]
     Active Substance: LAMOTRIGINE
     Dosage: 400 MG, U
     Dates: start: 201210
  4. LAMOTRIGINE. [Suspect]
     Active Substance: LAMOTRIGINE
     Indication: CONVULSION PROPHYLAXIS
     Route: 048
  5. LAMICTAL XR [Suspect]
     Active Substance: LAMOTRIGINE
     Indication: CONVULSION PROPHYLAXIS
     Dosage: 200 MG, U
     Route: 048
     Dates: start: 2005
  6. RESTASIS [Concomitant]
     Active Substance: CYCLOSPORINE
  7. LUMIGAN [Concomitant]
     Active Substance: BIMATOPROST
  8. LASIX [Concomitant]
     Active Substance: FUROSEMIDE
  9. CLONAZEPAM. [Concomitant]
     Active Substance: CLONAZEPAM
  10. LAMICTAL XR [Suspect]
     Active Substance: LAMOTRIGINE
     Indication: SEIZURE
     Dosage: 400 MG, U
     Dates: start: 20070101
  11. LAMICTAL XR [Suspect]
     Active Substance: LAMOTRIGINE
     Dosage: 300 MG, QD
     Route: 048
     Dates: start: 2007, end: 201209
  12. LAMICTAL XR [Suspect]
     Active Substance: LAMOTRIGINE
     Dosage: 500 MG, QD
     Dates: start: 2015, end: 20150914
  13. LAMICTAL XR [Suspect]
     Active Substance: LAMOTRIGINE
     Dosage: 300 MG, U
  14. COLACE [Concomitant]
     Active Substance: DOCUSATE SODIUM
  15. LAMICTAL [Suspect]
     Active Substance: LAMOTRIGINE
     Indication: SEIZURE
     Dosage: 400 MG, QD
  16. DILANTIN [Concomitant]
     Active Substance: PHENYTOIN
  17. PEPCID [Concomitant]
     Active Substance: FAMOTIDINE
  18. DEXAMETHASONE. [Concomitant]
     Active Substance: DEXAMETHASONE
  19. LAMICTAL XR [Suspect]
     Active Substance: LAMOTRIGINE
     Dosage: 400 MG, QD
     Route: 048
     Dates: start: 2008, end: 2015
  20. LAMICTAL XR [Suspect]
     Active Substance: LAMOTRIGINE
     Dosage: 600 MG, QD
     Dates: start: 20150914
  21. LAMICTAL XR [Suspect]
     Active Substance: LAMOTRIGINE
     Dosage: 500 MG, U
  22. LAMICTAL XR [Suspect]
     Active Substance: LAMOTRIGINE
     Dosage: 400 MG, QD
  23. LAMICTAL XR [Suspect]
     Active Substance: LAMOTRIGINE
     Dosage: 100 MG, QD
  24. LAMICTAL XR [Suspect]
     Active Substance: LAMOTRIGINE
     Dosage: 400 MG, QD
     Route: 048
     Dates: start: 201209
  25. LAMICTAL XR [Suspect]
     Active Substance: LAMOTRIGINE
     Dosage: UNK

REACTIONS (23)
  - Brain operation [Unknown]
  - Brain lobectomy [Recovered/Resolved]
  - Aspiration [Unknown]
  - Fall [Unknown]
  - Intentional product use issue [Unknown]
  - Seizure [Not Recovered/Not Resolved]
  - Vision blurred [Not Recovered/Not Resolved]
  - Gastrooesophageal reflux disease [Unknown]
  - Dyspnoea [Unknown]
  - Intracranial pressure increased [Unknown]
  - Craniotomy [Unknown]
  - Drug ineffective [Unknown]
  - Malaise [Unknown]
  - Surgery [Unknown]
  - Brain injury [Unknown]
  - Loss of consciousness [Not Recovered/Not Resolved]
  - Dizziness postural [Unknown]
  - Amnesia [Unknown]
  - Feeling abnormal [Unknown]
  - Visual impairment [Unknown]
  - Vagal nerve stimulator implantation [Unknown]
  - Memory impairment [Unknown]
  - Spinal pain [Unknown]

NARRATIVE: CASE EVENT DATE: 200607
